FAERS Safety Report 6774412-5 (Version None)
Quarter: 2010Q2

REPORT INFORMATION
  Report Type: 
  Country: None (occurrence: None)
  Receive Date: 20100617
  Receipt Date: 20100609
  Transmission Date: 20101027
  Serious: Yes (Life-Threatening)
  Sender: FDA-Public Use
  Company Number: FR-TEVA-237734ISR

PATIENT
  Sex: Female

DRUGS (9)
  1. VINCRISTINE [Suspect]
     Indication: ACUTE LYMPHOCYTIC LEUKAEMIA
     Route: 042
     Dates: start: 20091210, end: 20091230
  2. ASPARAGINASE [Suspect]
     Indication: ACUTE LYMPHOCYTIC LEUKAEMIA
     Dosage: 6000 IU/M2
     Route: 042
     Dates: start: 20091217, end: 20091217
  3. DAUNORUBICIN HYDROCHLORIDE [Suspect]
     Indication: ACUTE LYMPHOCYTIC LEUKAEMIA
     Route: 042
     Dates: start: 20091210, end: 20091212
  4. DAUNORUBICIN HYDROCHLORIDE [Suspect]
     Route: 042
     Dates: start: 20091214, end: 20091215
  5. CYCLOPHOSPHAMIDE [Suspect]
     Indication: ACUTE LYMPHOCYTIC LEUKAEMIA
     Route: 042
     Dates: start: 20091210, end: 20091210
  6. CYCLOPHOSPHAMIDE [Suspect]
     Route: 042
     Dates: start: 20091224, end: 20091226
  7. CYTARABINE [Suspect]
     Indication: ACUTE LYMPHOCYTIC LEUKAEMIA
     Route: 037
     Dates: start: 20091210, end: 20091217
  8. METHOTREXATE [Suspect]
     Indication: ACUTE LYMPHOCYTIC LEUKAEMIA
     Route: 037
     Dates: start: 20091210, end: 20091217
  9. METHYLPREDNISOLONE [Suspect]
     Indication: ACUTE LYMPHOCYTIC LEUKAEMIA
     Route: 037
     Dates: start: 20091210, end: 20091217

REACTIONS (2)
  - CEREBRAL THROMBOSIS [None]
  - HEMIPARESIS [None]
